FAERS Safety Report 17061323 (Version 1)
Quarter: 2019Q4

REPORT INFORMATION
  Report Type: Spontaneous
  Country: US (occurrence: US)
  Receive Date: 20191121
  Receipt Date: 20191121
  Transmission Date: 20200122
  Serious: No
  Sender: FDA-Public Use
  Company Number: NVSC2019US036195

PATIENT
  Age: 43 Year

DRUGS (1)
  1. CLONAZEPAM. [Suspect]
     Active Substance: CLONAZEPAM
     Indication: PRODUCT USED FOR UNKNOWN INDICATION
     Route: 065

REACTIONS (7)
  - Depression [Unknown]
  - Headache [Unknown]
  - Muscle twitching [Unknown]
  - Hyperhidrosis [Unknown]
  - Anxiety [Unknown]
  - Drug ineffective [Unknown]
  - Diarrhoea [Unknown]
